FAERS Safety Report 21801668 (Version 1)
Quarter: 2022Q4

REPORT INFORMATION
  Report Type: Report from Study
  Country: US (occurrence: US)
  Receive Date: 20221230
  Receipt Date: 20221230
  Transmission Date: 20230113
  Serious: No
  Sender: FDA-Public Use
  Company Number: US-ABBVIE-4214175

PATIENT
  Age: 53 Year
  Sex: Female

DRUGS (2)
  1. HUMIRA [Suspect]
     Active Substance: ADALIMUMAB
     Indication: Product used for unknown indication
     Dosage: LAST ADMIN DATE:2022, ONSET DATE FOR BRONCHITIS, DERMATITIS ATOPIC AND FLARE UP OF SYMPTOMS :2022
     Route: 058
  2. DUPIXENT [Suspect]
     Active Substance: DUPILUMAB
     Indication: Hidradenitis
     Dosage: 300MG PER 2ML,  LAST ADMIN DATE: 2022, ONSET DATE FOR BRONCHITIS, DERMATITIS ATOPIC AND FLARE UP ...
     Route: 058
     Dates: start: 20220408

REACTIONS (4)
  - Dermatitis atopic [Unknown]
  - Off label use [Unknown]
  - Bronchitis [Unknown]
  - Condition aggravated [Unknown]

NARRATIVE: CASE EVENT DATE: 20220408
